FAERS Safety Report 6437164-4 (Version None)
Quarter: 2009Q4

REPORT INFORMATION
  Report Type: 
  Country: None (occurrence: None)
  Receive Date: 20091112
  Receipt Date: 20091104
  Transmission Date: 20100525
  Serious: Yes (Other)
  Sender: FDA-Public Use
  Company Number: JP-BAYER-200913558BYL

PATIENT
  Age: 61 Year
  Sex: Male
  Weight: 73 kg

DRUGS (10)
  1. NEXAVAR [Suspect]
     Indication: HEPATIC NEOPLASM MALIGNANT
     Dosage: TOTAL DAILY DOSE: 800 MG  UNIT DOSE: 200 MG
     Route: 048
     Dates: start: 20090810, end: 20090918
  2. MYSLEE [Concomitant]
     Indication: INSOMNIA
     Dosage: SINCE BEFORE NEXAVAR ADMINISTRATION
     Route: 048
  3. GLAKAY [Concomitant]
     Dosage: SINCE BEFORE NEXAVAR ADMINISTRATION
     Route: 048
  4. LIVACT [Concomitant]
     Dosage: SINCE BEFORE NEXAVAR ADMINISTRATION
     Route: 048
  5. LASIX [Concomitant]
     Dosage: SINCE BEFORE NEXAVAR ADMINISTRATION
     Route: 048
  6. ALDACTONE [Concomitant]
     Dosage: SINCE BEFORE NEXAVAR ADMINISTRATION
     Route: 048
  7. MAGMITT [Concomitant]
     Indication: CONSTIPATION
     Dosage: SINCE BEFORE NEXAVAR ADMINISTRATION
     Route: 048
  8. LANSOPRAZOLE [Concomitant]
     Indication: GASTRITIS PROPHYLAXIS
     Dosage: SINCE BEFORE NEXAVAR ADMINISTRATION
     Route: 048
  9. AMARYL [Concomitant]
     Dosage: SINCE BEFORE NEXAVAR ADMINISTRATION
     Route: 048
  10. ACTOS [Concomitant]
     Dosage: SINCE BEFORE NEXAVAR ADMINISTRATION
     Route: 048

REACTIONS (8)
  - ALANINE AMINOTRANSFERASE INCREASED [None]
  - AMMONIA INCREASED [None]
  - ASCITES [None]
  - ASPARTATE AMINOTRANSFERASE INCREASED [None]
  - ASTHENIA [None]
  - HYPERTENSION [None]
  - HYPONATRAEMIA [None]
  - PLATELET COUNT DECREASED [None]
